FAERS Safety Report 20608133 (Version 1)
Quarter: 2022Q1

REPORT INFORMATION
  Report Type: Spontaneous
  Country: BG (occurrence: BG)
  Receive Date: 20220317
  Receipt Date: 20220317
  Transmission Date: 20220423
  Serious: Yes (Hospitalization, Other)
  Sender: FDA-Public Use
  Company Number: None

PATIENT
  Age: 83 Year
  Sex: Male

DRUGS (5)
  1. IRBESARTAN [Suspect]
     Active Substance: IRBESARTAN
     Indication: Hypertension
     Dosage: 1 DF, Q12H, CO-IRBESAN 150 MG/12.5 MG, IRBESARTAN HYDROCHLOROTHIAZIDE
     Dates: start: 20210610, end: 20211006
  2. PIRACETAM [Concomitant]
     Active Substance: PIRACETAM
  3. MOLSIDOMINE [Concomitant]
     Active Substance: MOLSIDOMINE
  4. VINPOCETINE [Concomitant]
     Active Substance: VINPOCETINE
  5. ROSUVASTATIN [Concomitant]
     Active Substance: ROSUVASTATIN

REACTIONS (1)
  - Keratoacanthoma [Recovered/Resolved with Sequelae]

NARRATIVE: CASE EVENT DATE: 20210810
